FAERS Safety Report 20896361 (Version 1)
Quarter: 2022Q2

REPORT INFORMATION
  Report Type: Report from Study
  Country: US (occurrence: US)
  Receive Date: 20220531
  Receipt Date: 20220531
  Transmission Date: 20220721
  Serious: Yes (Other)
  Sender: FDA-Public Use
  Company Number: US-BAYER-2022A075808

PATIENT
  Age: 49 Year
  Sex: Female

DRUGS (3)
  1. ASPIRIN [Suspect]
     Active Substance: ASPIRIN
     Dosage: UNK
  2. TICAGRELOR [Concomitant]
     Active Substance: TICAGRELOR
  3. APIXABAN [Concomitant]
     Active Substance: APIXABAN

REACTIONS (2)
  - Labelled drug-drug interaction medication error [None]
  - Haemorrhage [None]
